FAERS Safety Report 5534910-9 (Version None)
Quarter: 2007Q4

REPORT INFORMATION
  Report Type: 
  Country: None (occurrence: None)
  Receive Date: 20071205
  Receipt Date: 20071107
  Transmission Date: 20080405
  Serious: No
  Sender: FDA-Public Use
  Company Number: US-BOEHRINGER INGELHEIM PHARMACEUTICALS, INC.-2007-BP-25298BP

PATIENT
  Age: 44 Year
  Sex: Female

DRUGS (1)
  1. METACAM ORAL SUSPENSION [Suspect]
     Route: 031

REACTIONS (3)
  - ACCIDENTAL EXPOSURE [None]
  - EYE IRRITATION [None]
  - OCULAR HYPERAEMIA [None]
